FAERS Safety Report 20653494 (Version 1)
Quarter: 2022Q1

REPORT INFORMATION
  Report Type: Spontaneous
  Country: US (occurrence: None)
  Receive Date: 20220330
  Receipt Date: 20220330
  Transmission Date: 20220424
  Serious: No
  Sender: FDA-Public Use
  Company Number: 2022A094313

PATIENT
  Sex: Female
  Weight: 44.5 kg

DRUGS (2)
  1. CRESTOR [Suspect]
     Active Substance: ROSUVASTATIN CALCIUM
     Indication: Blood cholesterol increased
     Dosage: 5.0MG UNKNOWN
     Route: 048
  2. CRESTOR [Suspect]
     Active Substance: ROSUVASTATIN CALCIUM
     Indication: Blood cholesterol increased
     Dosage: 2.5MG UNKNOWN
     Route: 048
     Dates: start: 202201

REACTIONS (10)
  - Pain in jaw [Unknown]
  - Back pain [Unknown]
  - Ear pain [Unknown]
  - Ear discomfort [Unknown]
  - Facial pain [Unknown]
  - Temporomandibular joint syndrome [Unknown]
  - Hypertension [Unknown]
  - Neck pain [Unknown]
  - Drug hypersensitivity [Unknown]
  - Off label use [Unknown]
